FAERS Safety Report 5384945-4 (Version None)
Quarter: 2007Q3

REPORT INFORMATION
  Report Type: 
  Country: None (occurrence: None)
  Receive Date: 20070709
  Receipt Date: 20070627
  Transmission Date: 20080115
  Serious: Yes (Hospitalization, Other)
  Sender: FDA-Public Use
  Company Number: 232219K07USA

PATIENT
  Age: 74 Year
  Sex: Female

DRUGS (1)
  1. REBIF [Suspect]
     Indication: MULTIPLE SCLEROSIS
     Dosage: 44 MCG, 3 IN 1 WEEKS, SUBCUTANEOUS
     Route: 058
     Dates: start: 20061121, end: 20070610

REACTIONS (6)
  - ECONOMIC PROBLEM [None]
  - HERNIA [None]
  - INFLUENZA LIKE ILLNESS [None]
  - INTESTINAL STRANGULATION [None]
  - POSTOPERATIVE WOUND INFECTION [None]
  - PROCEDURAL COMPLICATION [None]
